FAERS Safety Report 18315623 (Version 1)
Quarter: 2020Q3

REPORT INFORMATION
  Report Type: Report from Study
  Country: GB (occurrence: GB)
  Receive Date: 20200926
  Receipt Date: 20200926
  Transmission Date: 20201103
  Serious: Yes (Other)
  Sender: FDA-Public Use
  Company Number: NVSC2020GB176138

PATIENT
  Sex: Female

DRUGS (1)
  1. HYRIMOZ [Suspect]
     Active Substance: ADALIMUMAB-ADAZ
     Indication: RHEUMATOID ARTHRITIS
     Dosage: 1 DF, QW
     Route: 065
     Dates: start: 20200310

REACTIONS (7)
  - Weight increased [Recovering/Resolving]
  - Pain [Unknown]
  - Stress [Unknown]
  - Ankylosing spondylitis [Unknown]
  - Insomnia [Recovering/Resolving]
  - Arthritis [Unknown]
  - Arthralgia [Unknown]
